FAERS Safety Report 9758160 (Version 3)
Quarter: 2014Q1

REPORT INFORMATION
  Report Type: Spontaneous
  Country: JP (occurrence: JP)
  Receive Date: 20131216
  Receipt Date: 20140110
  Transmission Date: 20141002
  Serious: Yes (Death)
  Sender: FDA-Public Use
  Company Number: JP-JNJFOC-20131207913

PATIENT
  Age: 9 Decade
  Sex: Male

DRUGS (1)
  1. TRAMCET [Suspect]
     Indication: FRACTURE PAIN
     Dosage: ONCE A DAY
     Route: 048

REACTIONS (1)
  - Hepatitis fulminant [Fatal]
